FAERS Safety Report 5606060-4 (Version None)
Quarter: 2008Q1

REPORT INFORMATION
  Report Type: 
  Country: None (occurrence: None)
  Receive Date: 20080123
  Receipt Date: 20080123
  Transmission Date: 20080703
  Serious: Yes (Hospitalization, Other)
  Sender: FDA-Public Use
  Company Number: None

PATIENT
  Age: 46 Year
  Sex: Female
  Weight: 83.9154 kg

DRUGS (1)
  1. CHLORAPREP [Suspect]
     Indication: PREOPERATIVE CARE
     Dosage: 2% CHLOROHEXIDINE PLUMMETS 1X TOP 70% ISOPROPOL ALCOHOL 1X TOP
     Route: 061
     Dates: start: 20080116, end: 20080117

REACTIONS (4)
  - APPLICATION SITE RASH [None]
  - FEELING ABNORMAL [None]
  - SKIN EROSION [None]
  - WOUND SECRETION [None]
